FAERS Safety Report 6989241-7 (Version None)
Quarter: 2010Q3

REPORT INFORMATION
  Report Type: 
  Country: None (occurrence: None)
  Receive Date: 20100916
  Receipt Date: 20091022
  Transmission Date: 20110219
  Serious: Yes (Other)
  Sender: FDA-Public Use
  Company Number: ES-PFIZER INC-2009265921

PATIENT
  Age: 31 Year
  Sex: Female

DRUGS (2)
  1. LYRICA [Suspect]
     Indication: GENERALISED ANXIETY DISORDER
     Dosage: 25 MG, 3X/DAY
     Route: 048
     Dates: start: 20090414, end: 20090501
  2. ALPRAZOLAM [Concomitant]
     Indication: ANXIETY

REACTIONS (3)
  - ACCOMMODATION DISORDER [None]
  - DYSARTHRIA [None]
  - DYSGRAPHIA [None]
